FAERS Safety Report 7068726-1 (Version None)
Quarter: 2010Q4

REPORT INFORMATION
  Report Type: 
  Country: None (occurrence: None)
  Receive Date: 20101028
  Receipt Date: 20101020
  Transmission Date: 20110411
  Serious: Yes (Hospitalization, Other)
  Sender: FDA-Public Use
  Company Number: US-PFIZER INC-2010111245

PATIENT
  Sex: Female
  Weight: 48.987 kg

DRUGS (18)
  1. SUTENT [Suspect]
     Indication: RENAL CANCER
     Dosage: 50 MG, 1X/DAY
     Route: 048
     Dates: start: 20100504
  2. ATIVAN [Concomitant]
     Dosage: UNK
  3. LASIX [Concomitant]
     Dosage: UNK
  4. LISINOPRIL [Concomitant]
     Dosage: UNK
  5. POTASSIUM CHLORIDE [Concomitant]
     Dosage: UNK
  6. ZOLOFT [Concomitant]
     Dosage: UNK
  7. OXYCODONE [Concomitant]
     Dosage: UNK
  8. BENADRYL [Concomitant]
     Dosage: UNK
  9. MS CONTIN [Concomitant]
     Dosage: UNK
  10. LACTULOSE [Concomitant]
     Dosage: UNK
  11. GABAPENTIN [Concomitant]
     Dosage: UNK
  12. FLEXERIL [Concomitant]
     Dosage: UNK
  13. CARAFATE [Concomitant]
     Dosage: UNK
  14. NEXIUM [Concomitant]
     Dosage: UNK
  15. IRON [Concomitant]
     Dosage: UNK
  16. SYNTHROID [Concomitant]
     Dosage: UNK
  17. LISINOPRIL AND HYDROCHLOROTHIAZIDE [Concomitant]
     Dosage: UNK
  18. PREDNISONE [Concomitant]
     Dosage: UNK

REACTIONS (3)
  - ALVEOLITIS ALLERGIC [None]
  - INTERSTITIAL LUNG DISEASE [None]
  - LUNG INFILTRATION [None]
